FAERS Safety Report 8409715-1 (Version None)
Quarter: 2012Q2

REPORT INFORMATION
  Report Type: 
  Country: None (occurrence: None)
  Receive Date: 20120529
  Receipt Date: 20120510
  Transmission Date: 20120825
  Serious: Yes (Life-Threatening, Hospitalization, Other)
  Sender: FDA-Public Use
  Company Number: 54973 AE # 871

PATIENT
  Age: 37 Year
  Sex: Female

DRUGS (1)
  1. HYLAND'S NERVE TONIC CAPLETS [Suspect]
     Indication: STRESS
     Dosage: 45 CAPLETS AT ONCE

REACTIONS (4)
  - CHEST PAIN [None]
  - INTENTIONAL DRUG MISUSE [None]
  - RENAL PAIN [None]
  - BURNING SENSATION [None]
